FAERS Safety Report 18019207 (Version 1)
Quarter: 2020Q3

REPORT INFORMATION
  Report Type: Spontaneous
  Country: US (occurrence: US)
  Receive Date: 20200713
  Receipt Date: 20200713
  Transmission Date: 20201103
  Serious: Yes (Other)
  Sender: FDA-Public Use
  Company Number: None

PATIENT
  Age: 48 Year
  Sex: Female
  Weight: 60.3 kg

DRUGS (2)
  1. SACITUZUMAB GOVITECAN. [Suspect]
     Active Substance: SACITUZUMAB GOVITECAN
     Indication: BREAST CANCER STAGE IV
     Route: 042
     Dates: start: 20200401, end: 20200511
  2. SACITUZUMAB GOVITECAN. [Suspect]
     Active Substance: SACITUZUMAB GOVITECAN
     Indication: BREAST CANCER STAGE IV
     Route: 042
     Dates: start: 20200421, end: 20200511

REACTIONS (8)
  - Therapy cessation [None]
  - Diarrhoea [None]
  - Asthenia [None]
  - Nausea [None]
  - Vomiting [None]
  - Anaemia [None]
  - Drug intolerance [None]
  - White blood cell count decreased [None]

NARRATIVE: CASE EVENT DATE: 20200511
